FAERS Safety Report 5794973-2 (Version None)
Quarter: 2008Q2

REPORT INFORMATION
  Report Type: 
  Country: None (occurrence: None)
  Receive Date: 20080627
  Receipt Date: 20080627
  Transmission Date: 20081010
  Serious: Yes (Other)
  Sender: FDA-Public Use
  Company Number: None

PATIENT
  Sex: Male

DRUGS (5)
  1. REVLIMID [Suspect]
     Indication: MANTLE CELL LYMPHOMA
     Dosage: 25 MG DAILY X21DAYS/28D PO
     Route: 048
     Dates: start: 20080212, end: 20080530
  2. LOVASTATIN [Concomitant]
  3. GLYBURIDE [Concomitant]
  4. METFORMIN HCL [Concomitant]
  5. WARFARIN SODIUM [Concomitant]

REACTIONS (2)
  - ECONOMIC PROBLEM [None]
  - NEUTROPENIA [None]
